FAERS Safety Report 4837719-4 (Version None)
Quarter: 2005Q4

REPORT INFORMATION
  Report Type: 
  Country: None (occurrence: None)
  Receive Date: 20051128
  Receipt Date: 20051004
  Transmission Date: 20060501
  Serious: Yes (Hospitalization)
  Sender: FDA-Public Use
  Company Number: US-MERCK-0510USA03108

PATIENT
  Age: 72 Year
  Sex: Female
  Weight: 91 kg

DRUGS (12)
  1. VIOXX [Suspect]
     Indication: ARTHRITIS
     Route: 048
     Dates: start: 19990818, end: 20040701
  2. ZOLOFT [Concomitant]
     Route: 065
  3. NAPRELAN [Concomitant]
     Route: 065
  4. TRAZODONE HYDROCHLORIDE [Concomitant]
     Route: 065
  5. PREMARIN [Concomitant]
     Route: 065
  6. CELEBREX [Concomitant]
     Route: 065
  7. PRILOSEC [Concomitant]
     Route: 065
  8. AMBIEN [Concomitant]
     Route: 065
  9. ALLEGRA [Concomitant]
     Route: 065
  10. ZITHROMAX [Concomitant]
     Route: 065
  11. CYCLOBENZAPRINE HYDROCHLORIDE [Concomitant]
     Route: 065
  12. LORTAB [Suspect]
     Route: 065

REACTIONS (5)
  - CARDIAC DISORDER [None]
  - CEREBROVASCULAR ACCIDENT [None]
  - HYPERTENSION [None]
  - MICROANGIOPATHY [None]
  - THERAPEUTIC AGENT TOXICITY [None]
